FAERS Safety Report 16184769 (Version 2)
Quarter: 2019Q2

REPORT INFORMATION
  Report Type: Spontaneous
  Country: US (occurrence: US)
  Receive Date: 20190411
  Receipt Date: 20190507
  Transmission Date: 20190711
  Serious: No
  Sender: FDA-Public Use
  Company Number: US-BAYER-2019-066099

PATIENT

DRUGS (1)
  1. CIPRO [Suspect]
     Active Substance: CIPROFLOXACIN HYDROCHLORIDE
     Dosage: UNK

REACTIONS (10)
  - Musculoskeletal stiffness [None]
  - Erythema [None]
  - Pain [None]
  - Joint stiffness [None]
  - Muscle tightness [None]
  - Peripheral swelling [None]
  - Arthritis [None]
  - Spondylitis [None]
  - Tendonitis [None]
  - Skin warm [None]
